FAERS Safety Report 5281208-2 (Version None)
Quarter: 2007Q1

REPORT INFORMATION
  Report Type: 
  Country: None (occurrence: None)
  Receive Date: 20070329
  Receipt Date: 20070323
  Transmission Date: 20070707
  Serious: Yes (Other)
  Sender: FDA-Public Use
  Company Number: GB-ABBOTT-07P-167-0357203-00

PATIENT
  Sex: Female
  Weight: 82.628 kg

DRUGS (13)
  1. HUMIRA [Suspect]
     Indication: RHEUMATOID ARTHRITIS
     Route: 058
     Dates: start: 20061101, end: 20070201
  2. CANDESARTAN [Concomitant]
     Indication: HYPERTENSION
     Route: 048
  3. METFORMIN [Concomitant]
     Indication: DIABETES MELLITUS
     Dosage: NOT REPORTED
     Route: 048
  4. GLICLAZIDE [Concomitant]
     Indication: DIABETES MELLITUS
     Route: 048
  5. QUININE [Concomitant]
     Indication: MUSCLE SPASMS
  6. LEVOTHYROXINE SODIUM [Concomitant]
     Indication: HYPOTHYROIDISM
     Route: 048
  7. TRAMADOL HCL [Concomitant]
     Indication: ANALGESIC EFFECT
  8. TRAMADOL HCL [Concomitant]
  9. ACETAMINOPHEN [Concomitant]
     Indication: ANALGESIC EFFECT
     Dosage: NOT REPORTED
  10. BENDROFLUMETHIAZIDE [Concomitant]
     Indication: HYPERTENSION
  11. FERROUS FUMARATE [Concomitant]
     Indication: ANAEMIA
  12. RABEPRAZOLE SODIUM [Concomitant]
     Indication: ANTACID THERAPY
     Route: 048
  13. AMITRIPTYLINE HCL [Concomitant]
     Indication: INSOMNIA

REACTIONS (4)
  - DIABETES MELLITUS INADEQUATE CONTROL [None]
  - DRUG INEFFECTIVE [None]
  - INFECTION IN AN IMMUNOCOMPROMISED HOST [None]
  - URINARY TRACT INFECTION [None]
